FAERS Safety Report 14615156 (Version 1)
Quarter: 2018Q1

REPORT INFORMATION
  Report Type: Spontaneous
  Country: US (occurrence: US)
  Receive Date: 20180308
  Receipt Date: 20180308
  Transmission Date: 20180509
  Serious: Yes (Hospitalization, Other)
  Sender: FDA-Public Use
  Company Number: US-PFIZER INC-2018091523

PATIENT
  Age: 82 Year
  Sex: Female

DRUGS (1)
  1. REVATIO [Suspect]
     Active Substance: SILDENAFIL CITRATE
     Dosage: 20 MG, 3X/DAY

REACTIONS (7)
  - Pulmonary oedema [Unknown]
  - Scratch [Unknown]
  - Pulmonary hypertension [Unknown]
  - Fall [Unknown]
  - Abnormal behaviour [Unknown]
  - Carbon dioxide increased [Unknown]
  - Oedema peripheral [Unknown]
